FAERS Safety Report 5241971-3 (Version None)
Quarter: 2007Q1

REPORT INFORMATION
  Report Type: 
  Country: None (occurrence: None)
  Receive Date: 20070220
  Receipt Date: 20070208
  Transmission Date: 20070707
  Serious: Yes (Other)
  Sender: FDA-Public Use
  Company Number: FR-PFIZER INC-2007011218

PATIENT
  Sex: Female

DRUGS (6)
  1. LYRICA [Suspect]
     Indication: DIABETIC NEUROPATHY
     Dates: start: 20061013, end: 20070105
  2. MORPHINE SULFATE [Concomitant]
  3. DITROPAN [Concomitant]
  4. PERINDOPRIL ERBUMINE [Concomitant]
  5. AMLOR [Concomitant]
  6. INSULIN [Concomitant]

REACTIONS (1)
  - VASCULITIS NECROTISING [None]
